FAERS Safety Report 5501857-3 (Version None)
Quarter: 2007Q4

REPORT INFORMATION
  Report Type: 
  Country: None (occurrence: None)
  Receive Date: 20071030
  Receipt Date: 20070626
  Transmission Date: 20080405
  Serious: No
  Sender: FDA-Public Use
  Company Number: A0649987A

PATIENT
  Age: 75 Year
  Sex: Male

DRUGS (9)
  1. SEREVENT [Suspect]
     Indication: DRUG USE FOR UNKNOWN INDICATION
     Dosage: 1PUFF TWICE PER DAY
     Route: 055
  2. PROVENTIL [Concomitant]
  3. ATROVENT [Concomitant]
  4. ALPRAZOLAM [Concomitant]
  5. DIOVAN [Concomitant]
  6. COUMADIN [Concomitant]
  7. PRILOSEC [Concomitant]
  8. LORTAB [Concomitant]
  9. OXYGEN [Concomitant]

REACTIONS (2)
  - DRUG INEFFECTIVE [None]
  - PHARMACEUTICAL PRODUCT COMPLAINT [None]
